FAERS Safety Report 7505316-8 (Version None)
Quarter: 2011Q2

REPORT INFORMATION
  Report Type: 
  Country: None (occurrence: None)
  Receive Date: 20110420
  Receipt Date: 20110224
  Transmission Date: 20111010
  Serious: Yes (Hospitalization)
  Sender: FDA-Public Use
  Company Number: SPV1-2010-00787

PATIENT
  Age: 33 Year
  Sex: Male
  Weight: 81.6 kg

DRUGS (1)
  1. LIALDA [Suspect]
     Indication: COLITIS ULCERATIVE
     Dosage: 1.2 G, 2X/DAY, BID, ORAL
     Route: 048
     Dates: start: 20100325, end: 20100407

REACTIONS (1)
  - COLITIS ULCERATIVE [None]
